FAERS Safety Report 7104640-0 (Version None)
Quarter: 2010Q4

REPORT INFORMATION
  Report Type: 
  Country: None (occurrence: None)
  Receive Date: 20101116
  Receipt Date: 20101102
  Transmission Date: 20110411
  Serious: Yes (Hospitalization)
  Sender: FDA-Public Use
  Company Number: CA-JNJFOC-20101103928

PATIENT
  Age: 67 Year
  Sex: Female

DRUGS (11)
  1. CALCIUM CARBONATE [Suspect]
     Indication: PRODUCT USED FOR UNKNOWN INDICATION
  2. PROTAMINE SULFATE [Concomitant]
  3. INSULIN [Concomitant]
  4. CALCITRIOL [Concomitant]
  5. MILK OF MAGNESIA TAB [Concomitant]
  6. LEVOTHYROXINE [Concomitant]
  7. DOMPERIDONE [Concomitant]
     Dosage: 10MG BEFORE EACH MEAL AND AT BED TIME
  8. CLOPIDOGREL [Concomitant]
  9. DILTIAZEM [Concomitant]
  10. LIPITOR [Concomitant]
  11. EPOGEN [Concomitant]
     Dosage: 20 UNITS EVERY SECOND WEEK

REACTIONS (2)
  - HYPERCALCAEMIA [None]
  - HYPOKALAEMIA [None]
